FAERS Safety Report 17459630 (Version 1)
Quarter: 2020Q1

REPORT INFORMATION
  Report Type: Spontaneous
  Country: US (occurrence: US)
  Receive Date: 20200225
  Receipt Date: 20200225
  Transmission Date: 20200409
  Serious: No
  Sender: FDA-Public Use
  Company Number: US-ROCHE-2476942

PATIENT
  Sex: Male

DRUGS (4)
  1. NUTROPIN AQ [Suspect]
     Active Substance: SOMATROPIN
     Indication: GROWTH HORMONE DEFICIENCY
     Route: 058
     Dates: start: 201810
  2. PREDNISONE. [Concomitant]
     Active Substance: PREDNISONE
  3. EPOGEN [Concomitant]
     Active Substance: ERYTHROPOIETIN
  4. FERROUS SULFATE. [Concomitant]
     Active Substance: FERROUS SULFATE

REACTIONS (2)
  - No adverse event [Unknown]
  - Product dose omission [Unknown]
